FAERS Safety Report 10629770 (Version 1)
Quarter: 2014Q4

REPORT INFORMATION
  Report Type: Spontaneous
  Country: US (occurrence: US)
  Receive Date: 20141205
  Receipt Date: 20141205
  Transmission Date: 20150529
  Serious: No
  Sender: FDA-Public Use
  Company Number: US-BRISTOL-MYERS SQUIBB COMPANY-21330543

PATIENT
  Age: 68 Year
  Sex: Female
  Weight: 79.82 kg

DRUGS (4)
  1. CRESTOR [Concomitant]
     Active Substance: ROSUVASTATIN CALCIUM
     Indication: BLOOD CHOLESTEROL INCREASED
     Dosage: DRUG INT:AUG-2014
     Route: 048
     Dates: start: 2009, end: 201408
  2. BENAZEPRIL HCL + HCTZ [Concomitant]
     Indication: BLOOD PRESSURE
     Dosage: 20-12.5MG, DAILY
     Route: 048
     Dates: start: 1999
  3. METFORMIN HCL [Suspect]
     Active Substance: METFORMIN HYDROCHLORIDE
     Indication: DIABETES MELLITUS
     Route: 048
  4. ONGLYZA [Concomitant]
     Active Substance: SAXAGLIPTIN HYDROCHLORIDE
     Indication: DIABETES MELLITUS
     Route: 048
     Dates: start: 2004

REACTIONS (1)
  - Diarrhoea [Unknown]
